FAERS Safety Report 8131434-X (Version None)
Quarter: 2012Q1

REPORT INFORMATION
  Report Type: 
  Country: None (occurrence: None)
  Receive Date: 20120213
  Receipt Date: 20120131
  Transmission Date: 20120608
  Serious: Yes (Hospitalization)
  Sender: FDA-Public Use
  Company Number: DE-JNJFOC-20040505697

PATIENT
  Sex: Female

DRUGS (22)
  1. METHOTREXATE [Concomitant]
     Dates: start: 20040310, end: 20040310
  2. METHOTREXATE [Concomitant]
     Dates: start: 20100615
  3. REMICADE [Suspect]
     Indication: RHEUMATOID ARTHRITIS
     Route: 042
     Dates: start: 20050225, end: 20050225
  4. REMICADE [Suspect]
     Route: 042
     Dates: start: 20100615
  5. METHOTREXATE [Concomitant]
     Dates: start: 20040902, end: 20040902
  6. METHOTREXATE [Concomitant]
     Dates: start: 20050225, end: 20050225
  7. REMICADE [Suspect]
     Route: 042
     Dates: start: 20060324
  8. METHOTREXATE [Concomitant]
     Dates: start: 20051024
  9. REMICADE [Suspect]
     Route: 042
     Dates: start: 20030521, end: 20030521
  10. METHOTREXATE [Concomitant]
     Dates: start: 20081007
  11. REMICADE [Suspect]
     Route: 042
     Dates: start: 20040902, end: 20040902
  12. REMICADE [Suspect]
     Route: 042
     Dates: start: 20110627
  13. METHOTREXATE [Concomitant]
     Dates: start: 20030521, end: 20030521
  14. METHOTREXATE [Concomitant]
     Dates: start: 20030225, end: 20030225
  15. METHOTREXATE [Concomitant]
     Dates: start: 20060324
  16. REMICADE [Suspect]
     Route: 042
     Dates: start: 20030225, end: 20030225
  17. REMICADE [Suspect]
     Route: 042
     Dates: start: 20081007
  18. METHOTREXATE [Concomitant]
     Dates: start: 20030813, end: 20030813
  19. METHOTREXATE [Concomitant]
     Dates: start: 20110627
  20. REMICADE [Suspect]
     Route: 042
     Dates: start: 20040310, end: 20040310
  21. REMICADE [Suspect]
     Route: 042
     Dates: start: 20030813, end: 20030813
  22. ADALIMUMAB [Concomitant]
     Dates: start: 20051024

REACTIONS (5)
  - JOINT RANGE OF MOTION DECREASED [None]
  - ARTHRODESIS [None]
  - TENDON OPERATION [None]
  - JOINT ARTHROPLASTY [None]
  - SYNOVECTOMY [None]
